FAERS Safety Report 9587996 (Version 1)
Quarter: 2013Q4

REPORT INFORMATION
  Report Type: Spontaneous
  Country: US (occurrence: US)
  Receive Date: 20131003
  Receipt Date: 20131003
  Transmission Date: 20140711
  Serious: No
  Sender: FDA-Public Use
  Company Number: US-AMGEN-USASP2012067608

PATIENT
  Sex: Female

DRUGS (12)
  1. ENBREL [Suspect]
     Indication: RHEUMATOID ARTHRITIS
     Dosage: 50 MG/ML, QWK
     Route: 058
  2. ENBREL [Suspect]
     Indication: FIBROMYALGIA
  3. FLEXERIL                           /00428402/ [Concomitant]
     Dosage: 10 MG, UNK
  4. OXYCODONE [Concomitant]
     Dosage: 5 MG, UNK
  5. KLONOPIN [Concomitant]
     Dosage: 0.5 MG, UNK
  6. CYCLOBENZAPRINE [Concomitant]
     Dosage: 10 MG, UNK
  7. PREDNISONE [Concomitant]
     Dosage: 1 MG, UNK
  8. BACLOFEN [Concomitant]
     Dosage: 10 MG, UNK
  9. MULTIVITAMIN                       /07504101/ [Concomitant]
     Dosage: UNK
  10. TRAMADOL HCL [Concomitant]
     Dosage: 50 MG, UNK
  11. STOOL SOFTENER [Concomitant]
     Dosage: 100-30
  12. HUMIRA [Concomitant]
     Dosage: UNK

REACTIONS (1)
  - Drug ineffective [Unknown]
